FAERS Safety Report 18387108 (Version 1)
Quarter: 2020Q4

REPORT INFORMATION
  Report Type: Spontaneous
  Country: US (occurrence: US)
  Receive Date: 20201014
  Receipt Date: 20201014
  Transmission Date: 20210114
  Serious: Yes (Hospitalization)
  Sender: FDA-Public Use
  Company Number: None

PATIENT
  Age: 12 Year
  Sex: Female
  Weight: 47 kg

DRUGS (4)
  1. METHOTREXATE. [Suspect]
     Active Substance: METHOTREXATE
     Dates: end: 20200929
  2. PREDNISONE. [Suspect]
     Active Substance: PREDNISONE
     Dates: end: 20200721
  3. VINCRISTINE SULFATE. [Suspect]
     Active Substance: VINCRISTINE SULFATE
     Dates: end: 20200717
  4. MERCAPTOPURINE. [Suspect]
     Active Substance: MERCAPTOPURINE
     Dates: end: 20201003

REACTIONS (7)
  - Decreased appetite [None]
  - Vomiting [None]
  - Nausea [None]
  - Diarrhoea [None]
  - Hyperbilirubinaemia [None]
  - Abdominal tenderness [None]
  - Alanine aminotransferase increased [None]

NARRATIVE: CASE EVENT DATE: 20201006
